FAERS Safety Report 4640827-4 (Version None)
Quarter: 2005Q2

REPORT INFORMATION
  Report Type: 
  Country: None (occurrence: None)
  Receive Date: 20050324
  Receipt Date: 20050219
  Transmission Date: 20051028
  Serious: No
  Sender: FDA-Public Use
  Company Number: 212649

PATIENT
  Age: 77 Year
  Sex: Male
  Weight: 93.9 kg

DRUGS (2)
  1. AVASTIN [Suspect]
     Indication: COLON CANCER METASTATIC
     Dosage: 470 MG, Q2W, INTRAVENOUS
     Route: 042
     Dates: start: 20050103
  2. COUMADIN [Concomitant]

REACTIONS (2)
  - EPISTAXIS [None]
  - HYPERTENSION [None]
